FAERS Safety Report 17900117 (Version 1)
Quarter: 2020Q2

REPORT INFORMATION
  Report Type: Spontaneous
  Country: MT (occurrence: MT)
  Receive Date: 20200616
  Receipt Date: 20200616
  Transmission Date: 20200714
  Serious: Yes (Hospitalization, Other)
  Sender: FDA-Public Use
  Company Number: MT-ACCORD-185146

PATIENT
  Age: 13 Year
  Sex: Male

DRUGS (3)
  1. METHOTREXATE. [Suspect]
     Active Substance: METHOTREXATE
     Indication: SYSTEMIC LUPUS ERYTHEMATOSUS
  2. IBUPROFEN. [Concomitant]
     Active Substance: IBUPROFEN
     Indication: SYSTEMIC LUPUS ERYTHEMATOSUS
  3. HYDROXYCHLOROQUINE [Suspect]
     Active Substance: HYDROXYCHLOROQUINE
     Indication: SYSTEMIC LUPUS ERYTHEMATOSUS

REACTIONS (3)
  - Subdural abscess [Recovered/Resolved]
  - Meningitis streptococcal [Recovered/Resolved]
  - Streptococcal sepsis [Recovered/Resolved]
